FAERS Safety Report 4816456-6 (Version None)
Quarter: 2005Q4

REPORT INFORMATION
  Report Type: 
  Country: None (occurrence: None)
  Receive Date: 20051028
  Receipt Date: 20051018
  Transmission Date: 20060501
  Serious: Yes (Other)
  Sender: FDA-Public Use
  Company Number: 200510638BFR

PATIENT
  Age: 51 Year
  Sex: Female
  Weight: 50 kg

DRUGS (2)
  1. MOXIFLOXACIN HYDROCHLORIDE [Suspect]
     Indication: BRONCHITIS CHRONIC
     Dosage: 400 MG, QD, ORAL
     Route: 048
     Dates: start: 20050712, end: 20050719
  2. KARDEGIC [Concomitant]

REACTIONS (1)
  - BURNS SECOND DEGREE [None]
